FAERS Safety Report 22106846 (Version 1)
Quarter: 2023Q1

REPORT INFORMATION
  Report Type: Spontaneous
  Country: US (occurrence: US)
  Receive Date: 20230317
  Receipt Date: 20230317
  Transmission Date: 20230418
  Serious: No
  Sender: FDA-Public Use
  Company Number: US-SA-SAC20230314001584

PATIENT
  Age: 63 Year
  Sex: Male

DRUGS (8)
  1. DUPIXENT [Suspect]
     Active Substance: DUPILUMAB
     Indication: Dermatitis atopic
     Dosage: 300 MG, QOW
     Route: 058
     Dates: start: 20221122
  2. LOTEMAX [Concomitant]
     Active Substance: LOTEPREDNOL ETABONATE
     Route: 047
  3. ALLOPURINOL [Concomitant]
     Active Substance: ALLOPURINOL
  4. DIOVAN [Concomitant]
     Active Substance: VALSARTAN
  5. ELIDEL [Concomitant]
     Active Substance: PIMECROLIMUS
  6. EUCRISA [Concomitant]
     Active Substance: CRISABOROLE
  7. VITAMIN B1 [Concomitant]
     Active Substance: THIAMINE HYDROCHLORIDE
     Dosage: UNK
  8. VITAMIN D3 [Concomitant]
     Active Substance: CHOLECALCIFEROL

REACTIONS (1)
  - Dermatitis atopic [Unknown]
